FAERS Safety Report 9911664 (Version 1)
Quarter: 2014Q1

REPORT INFORMATION
  Report Type: Spontaneous
  Country: US (occurrence: US)
  Receive Date: 20140219
  Receipt Date: 20140219
  Transmission Date: 20141002
  Serious: No
  Sender: FDA-Public Use
  Company Number: US-LUNDBECK-DKLU1097016

PATIENT
  Age: 4 Year
  Sex: Female

DRUGS (2)
  1. SABRIL (FOR ORAL SOLUTION) [Suspect]
     Indication: INFANTILE SPASMS
     Dates: start: 20090924
  2. SABRIL (FOR ORAL SOLUTION) [Suspect]
     Dates: start: 20090924

REACTIONS (2)
  - Incorrect dose administered [Unknown]
  - Drug dose omission [Unknown]
